FAERS Safety Report 10063847 (Version 4)
Quarter: 2014Q2

REPORT INFORMATION
  Report Type: Report from Study
  Country: DE (occurrence: DE)
  Receive Date: 20140408
  Receipt Date: 20140515
  Transmission Date: 20141212
  Serious: Yes (Hospitalization)
  Sender: FDA-Public Use
  Company Number: DE-BIOGENIDEC-2014BI032862

PATIENT
  Age: 30 Year
  Sex: Female

DRUGS (1)
  1. AVONEX [Suspect]
     Indication: RELAPSING-REMITTING MULTIPLE SCLEROSIS
     Route: 030
     Dates: start: 20130610, end: 20140218

REACTIONS (5)
  - Drug-induced liver injury [Recovered/Resolved]
  - General physical health deterioration [Unknown]
  - Gallbladder disorder [Unknown]
  - Infection [Unknown]
  - Decreased appetite [Unknown]
